FAERS Safety Report 5316705-4 (Version None)
Quarter: 2007Q2

REPORT INFORMATION
  Report Type: 
  Country: None (occurrence: None)
  Receive Date: 20070504
  Receipt Date: 20070424
  Transmission Date: 20071010
  Serious: Yes (Other)
  Sender: FDA-Public Use
  Company Number: HQWYE830825APR07

PATIENT
  Age: 79 Year
  Sex: Male

DRUGS (1)
  1. MYLOTARG [Suspect]
     Dosage: 9 MG/M2 (FEQUENCY NOT SPECIFIED)
     Route: 042
     Dates: start: 20070331, end: 20070331

REACTIONS (1)
  - VENOOCCLUSIVE LIVER DISEASE [None]
